FAERS Safety Report 19758259 (Version 1)
Quarter: 2021Q3

REPORT INFORMATION
  Report Type: Spontaneous
  Country: US (occurrence: US)
  Receive Date: 20210827
  Receipt Date: 20210827
  Transmission Date: 20211014
  Serious: Yes (Disabling, Other)
  Sender: FDA-Public Use
  Company Number: US-FRESENIUS KABI-FK202109057

PATIENT
  Age: 16 Year
  Sex: Male
  Weight: 44 kg

DRUGS (6)
  1. ROPIVACAINE (MANUFACTURER UNKNOWN) [Suspect]
     Active Substance: ROPIVACAINE
     Dosage: 8ML HR?1
     Route: 050
  2. ROCURONIUM [Suspect]
     Active Substance: ROCURONIUM BROMIDE
     Indication: GENERAL ANAESTHESIA
     Route: 008
  3. LIDOCAINE / EPINEPHRINE 1,5% (MANUFACTURER UNKNOWN) [Suspect]
     Active Substance: EPINEPHRINE\LIDOCAINE
     Indication: EPIDURAL ANAESTHESIA
     Route: 008
  4. FENTANYL (MANUFACTURER UNKNOWN) [Suspect]
     Active Substance: FENTANYL
     Indication: GENERAL ANAESTHESIA
     Route: 008
  5. SEVOFLURANE. [Suspect]
     Active Substance: SEVOFLURANE
     Indication: GENERAL ANAESTHESIA
     Route: 008
  6. ROPIVACAINE (MANUFACTURER UNKNOWN) [Suspect]
     Active Substance: ROPIVACAINE
     Indication: GENERAL ANAESTHESIA
     Route: 050

REACTIONS (3)
  - Spinal cord infarction [Not Recovered/Not Resolved]
  - Hypotension [Unknown]
  - Paraplegia [Not Recovered/Not Resolved]
